FAERS Safety Report 25396506 (Version 1)
Quarter: 2025Q2

REPORT INFORMATION
  Report Type: Spontaneous
  Country: US (occurrence: US)
  Receive Date: 20250604
  Receipt Date: 20250604
  Transmission Date: 20250717
  Serious: Yes (Other)
  Sender: MYLAN
  Company Number: US-MYLANLABS-2025M1043091

PATIENT
  Age: 83 Year
  Sex: Female
  Weight: 53.52 kg

DRUGS (1)
  1. BREYNA [Suspect]
     Active Substance: BUDESONIDE\FORMOTEROL FUMARATE
     Indication: Asthma
     Dosage: 320 PER 9 MICROGRAM, BID (2 PUFFS TWICE A DAY MORNING AND EVENING)
     Dates: start: 20240523

REACTIONS (5)
  - Dyspnoea at rest [Not Recovered/Not Resolved]
  - Drug effect less than expected [Unknown]
  - Circumstance or information capable of leading to medication error [Unknown]
  - Product substitution issue [Unknown]
  - Device malfunction [Unknown]

NARRATIVE: CASE EVENT DATE: 20250515
